FAERS Safety Report 6923273-X (Version None)
Quarter: 2010Q3

REPORT INFORMATION
  Report Type: 
  Country: None (occurrence: None)
  Receive Date: 20100813
  Receipt Date: 20100804
  Transmission Date: 20110219
  Serious: Yes (Other)
  Sender: FDA-Public Use
  Company Number: US-JNJFOC-20100706847

PATIENT
  Sex: Female
  Weight: 51.71 kg

DRUGS (6)
  1. REMICADE [Suspect]
     Indication: CROHN'S DISEASE
     Route: 042
  2. REMICADE [Suspect]
     Route: 042
  3. REMICADE [Suspect]
     Indication: ANKYLOSING SPONDYLITIS
     Route: 042
  4. REMICADE [Suspect]
     Route: 042
  5. METHOTREXATE [Suspect]
     Indication: CROHN'S DISEASE
     Route: 048
     Dates: end: 20100101
  6. METHOTREXATE [Suspect]
     Indication: ANKYLOSING SPONDYLITIS
     Route: 048
     Dates: end: 20100101

REACTIONS (5)
  - GLOSSODYNIA [None]
  - INFUSION RELATED REACTION [None]
  - MIGRAINE [None]
  - SWOLLEN TONGUE [None]
  - VISION BLURRED [None]
